FAERS Safety Report 12070878 (Version 1)
Quarter: 2016Q1

REPORT INFORMATION
  Report Type: Spontaneous
  Country: US (occurrence: US)
  Receive Date: 20160211
  Receipt Date: 20160211
  Transmission Date: 20160526
  Serious: Yes (Other)
  Sender: FDA-Public Use
  Company Number: US-TEVA-633139USA

PATIENT
  Sex: Female

DRUGS (1)
  1. COPAXONE [Suspect]
     Active Substance: GLATIRAMER ACETATE
     Dosage: UNKNOWN FORM STRENGTH
     Route: 065

REACTIONS (8)
  - Injection site pain [Unknown]
  - Fatigue [Unknown]
  - Hypersensitivity [Unknown]
  - Weight increased [Unknown]
  - Narcolepsy [Unknown]
  - Insomnia [Unknown]
  - Skin disorder [Unknown]
  - Musculoskeletal pain [Unknown]
